FAERS Safety Report 25641522 (Version 1)
Quarter: 2025Q3

REPORT INFORMATION
  Report Type: Report from Study
  Country: GB (occurrence: GB)
  Receive Date: 20250804
  Receipt Date: 20250804
  Transmission Date: 20251021
  Serious: Yes (Life-Threatening, Other)
  Sender: NOVARTIS
  Company Number: GB-002147023-NVSC2025GB097976

PATIENT
  Sex: Female

DRUGS (1)
  1. MAYZENT [Suspect]
     Active Substance: SIPONIMOD
     Indication: Multiple sclerosis
     Dosage: 2 MG, QD
     Route: 048
     Dates: start: 20230714

REACTIONS (9)
  - Brain neoplasm [Unknown]
  - Bone cancer [Unknown]
  - Lung carcinoma cell type unspecified stage IV [Unknown]
  - Brain oedema [Unknown]
  - Fall [Unknown]
  - Headache [Unknown]
  - Pulmonary mass [Unknown]
  - Nodule [Unknown]
  - Breast mass [Unknown]
